FAERS Safety Report 14407112 (Version 1)
Quarter: 2018Q1

REPORT INFORMATION
  Report Type: Spontaneous
  Country: US (occurrence: US)
  Receive Date: 20180118
  Receipt Date: 20180118
  Transmission Date: 20180509
  Serious: Yes (Death)
  Sender: FDA-Public Use
  Company Number: US-TEVA-2018-US-846864

PATIENT
  Age: 34 Year
  Sex: Male

DRUGS (9)
  1. HYDROMORPHONE [Concomitant]
     Active Substance: HYDROMORPHONE
     Route: 065
  2. NOSCAPINE [Concomitant]
     Active Substance: NOSCAPINE
     Route: 065
  3. QUININE [Concomitant]
     Active Substance: QUININE
     Route: 065
  4. CAFFEINE. [Concomitant]
     Active Substance: CAFFEINE
     Route: 065
  5. PARA-FLUOROISOBUTYRYL FENTANYL [Concomitant]
     Route: 065
  6. FENTANYL. [Suspect]
     Active Substance: FENTANYL
     Route: 065
  7. DIPHENHYDRAMINE. [Concomitant]
     Active Substance: DIPHENHYDRAMINE
     Route: 065
  8. MANNITOL. [Concomitant]
     Active Substance: MANNITOL
     Route: 065
  9. MORPHINE [Concomitant]
     Active Substance: MORPHINE
     Route: 065

REACTIONS (1)
  - Toxicity to various agents [Fatal]
